FAERS Safety Report 15722040 (Version 9)
Quarter: 2023Q1

REPORT INFORMATION
  Report Type: Other
  Country: DE (occurrence: None)
  Receive Date: 20181214
  Receipt Date: 20230313
  Transmission Date: 20230418
  Serious: Yes (Hospitalization, Other)
  Sender: FDA-Public Use
  Company Number: DE-ROCHE-2230488

PATIENT
  Age: 46 Year
  Sex: Female

DRUGS (16)
  1. OCREVUS [Suspect]
     Active Substance: OCRELIZUMAB
     Indication: Relapsing-remitting multiple sclerosis
     Dosage: DATE OF TREATMENT: 04/NOV/2019
     Route: 042
     Dates: start: 20180424
  2. OCREVUS [Suspect]
     Active Substance: OCRELIZUMAB
     Route: 042
     Dates: start: 20181106
  3. OCREVUS [Suspect]
     Active Substance: OCRELIZUMAB
     Route: 042
     Dates: start: 20190514
  4. OCREVUS [Suspect]
     Active Substance: OCRELIZUMAB
     Route: 042
     Dates: start: 20200421
  5. OCREVUS [Suspect]
     Active Substance: OCRELIZUMAB
     Route: 042
     Dates: start: 20201103
  6. OCREVUS [Suspect]
     Active Substance: OCRELIZUMAB
     Dosage: NEXT DOSE WAS RECEIVED ON 28/DEC/2021
     Route: 042
     Dates: start: 20210420, end: 20211228
  7. CORTISONE [Suspect]
     Active Substance: CORTISONE
     Indication: Multiple sclerosis relapse
     Route: 065
     Dates: start: 20190228, end: 20190304
  8. PFIZER-BIONTECH COVID-19 VACCINE [Suspect]
     Active Substance: TOZINAMERAN
     Indication: COVID-19
     Route: 065
     Dates: start: 20211130
  9. NARATRIPTAN [Concomitant]
     Active Substance: NARATRIPTAN HYDROCHLORIDE
     Dosage: AS REQUIRED
  10. ZOLMITRIPTAN [Concomitant]
     Active Substance: ZOLMITRIPTAN
     Dosage: AS REQUIRED
  11. GINKGO [Concomitant]
     Active Substance: GINKGO
  12. IBUPROFEN [Concomitant]
     Active Substance: IBUPROFEN
     Dosage: AS REQUIRED
  13. ASPIRIN [Concomitant]
     Active Substance: ASPIRIN
     Dosage: AS REQUIRED
  14. CANNABIDIOL [Concomitant]
     Active Substance: CANNABIDIOL
  15. VITAMIN D3 [Concomitant]
     Active Substance: CHOLECALCIFEROL
  16. MIRTAZAPINE [Concomitant]
     Active Substance: MIRTAZAPINE

REACTIONS (32)
  - Nasopharyngitis [Recovered/Resolved]
  - Migraine [Not Recovered/Not Resolved]
  - Palatal disorder [Recovered/Resolved]
  - Paraesthesia [Recovered/Resolved]
  - Aura [Recovered/Resolved]
  - Vitreous floaters [Recovered/Resolved]
  - Fatigue [Recovered/Resolved]
  - Magnetic resonance imaging spinal abnormal [Recovered/Resolved]
  - Body temperature increased [Recovered/Resolved]
  - Injection site reaction [Recovered/Resolved]
  - Anal fissure [Recovered/Resolved]
  - Headache [Recovered/Resolved]
  - Bronchitis [Recovered/Resolved]
  - Laryngeal oedema [Recovered/Resolved]
  - Somatic symptom disorder [Recovered/Resolved]
  - Migraine [Recovered/Resolved]
  - Listless [Recovered/Resolved]
  - Tinea pedis [Recovered/Resolved]
  - Influenza like illness [Recovered/Resolved]
  - Vision blurred [Recovered/Resolved]
  - Fatigue [Recovered/Resolved]
  - Asthenia [Recovered/Resolved]
  - Gait disturbance [Recovered/Resolved]
  - Gastrooesophageal reflux disease [Recovered/Resolved]
  - Haemorrhage [Recovered/Resolved]
  - White blood cell count decreased [Recovered/Resolved]
  - Inappropriate schedule of product administration [Unknown]
  - COVID-19 [Recovered/Resolved]
  - Benign breast neoplasm [Recovered/Resolved]
  - Dysuria [Not Recovered/Not Resolved]
  - Gastrointestinal motility disorder [Not Recovered/Not Resolved]
  - Haemorrhoids [Recovered/Resolved]

NARRATIVE: CASE EVENT DATE: 20180424
